FAERS Safety Report 13044284 (Version 1)
Quarter: 2016Q4

REPORT INFORMATION
  Report Type: Spontaneous
  Country: US (occurrence: US)
  Receive Date: 20161220
  Receipt Date: 20161220
  Transmission Date: 20170207
  Serious: No
  Sender: FDA-Public Use
  Company Number: US-ROCHE-1034057

PATIENT
  Age: 46 Year
  Sex: Male
  Weight: 90.57 kg

DRUGS (1)
  1. ZELBORAF [Suspect]
     Active Substance: VEMURAFENIB
     Indication: METASTATIC MALIGNANT MELANOMA
     Route: 048
     Dates: start: 20120116, end: 20120123

REACTIONS (1)
  - Rash [Unknown]

NARRATIVE: CASE EVENT DATE: 20120123
